FAERS Safety Report 9653207 (Version 1)
Quarter: 2013Q4

REPORT INFORMATION
  Report Type: Spontaneous
  Country: US (occurrence: None)
  Receive Date: 20131028
  Receipt Date: 20131028
  Transmission Date: 20140711
  Serious: Yes (Disabling)
  Sender: FDA-Public Use
  Company Number: None

PATIENT
  Age: 50 Year
  Sex: Female
  Weight: 93.44 kg

DRUGS (1)
  1. ROPIRINOLE ER [Suspect]
     Indication: RESTLESS LEGS SYNDROME
     Dosage: 1 PILL ONCE DAILY
     Route: 048
     Dates: start: 20130801, end: 20131015

REACTIONS (3)
  - General symptom [None]
  - Disease recurrence [None]
  - Product substitution issue [None]
